FAERS Safety Report 7532402-9 (Version None)
Quarter: 2011Q2

REPORT INFORMATION
  Report Type: 
  Country: None (occurrence: None)
  Receive Date: 20110608
  Receipt Date: 20110602
  Transmission Date: 20111010
  Serious: Yes (Hospitalization)
  Sender: FDA-Public Use
  Company Number: JP-ABBOTT-11P-087-0728238-00

PATIENT
  Age: 78 Year
  Sex: Male

DRUGS (3)
  1. FEVER REDUCER [Concomitant]
     Indication: PRODUCT USED FOR UNKNOWN INDICATION
  2. EXPECTORANT [Concomitant]
     Indication: PRODUCT USED FOR UNKNOWN INDICATION
  3. CLARITHROMYCIN [Suspect]
     Indication: PRODUCT USED FOR UNKNOWN INDICATION

REACTIONS (1)
  - ALTERED STATE OF CONSCIOUSNESS [None]
